FAERS Safety Report 24210332 (Version 1)
Quarter: 2024Q3

REPORT INFORMATION
  Report Type: Spontaneous
  Country: FR (occurrence: None)
  Receive Date: 20240814
  Receipt Date: 20240814
  Transmission Date: 20241016
  Serious: Yes (Hospitalization)
  Sender: ASTRAZENECA
  Company Number: 2024A178042

PATIENT
  Age: 63 Year
  Sex: Male
  Weight: 83.6 kg

DRUGS (6)
  1. DAPAGLIFLOZIN [Suspect]
     Active Substance: DAPAGLIFLOZIN
     Indication: Type 2 diabetes mellitus
     Dosage: 1 CP IN THE MORNING
     Route: 048
     Dates: start: 20240202, end: 20240604
  2. METFORMIN HYDROCHLORIDE [Suspect]
     Active Substance: METFORMIN HYDROCHLORIDE
     Indication: Type 2 diabetes mellitus
     Dosage: 1 CP MORNING AND EVENING
     Route: 048
     Dates: start: 20210101, end: 20240604
  3. REPAGLINIDE [Suspect]
     Active Substance: REPAGLINIDE
     Indication: Hypertension
     Dosage: 1.5 CPR/DAY
     Route: 048
     Dates: start: 20240202, end: 20240604
  4. PRAVASTATIN SODIUM [Suspect]
     Active Substance: PRAVASTATIN SODIUM
     Indication: Dyslipidaemia
     Dosage: 1CP IN THE EVENING
     Route: 048
     Dates: start: 20240523, end: 20240531
  5. AMITRIPTYLINE HYDROCHLORIDE [Suspect]
     Active Substance: AMITRIPTYLINE HYDROCHLORIDE
     Indication: Diabetic neuropathy
     Dosage: 25 DROPS IN THE EVENING
     Route: 048
     Dates: start: 20240523, end: 20240604
  6. AMLODIPINE [Suspect]
     Active Substance: AMLODIPINE BESYLATE
     Indication: Hypertension
     Dosage: 1 CP IN THE MORNING
     Route: 048

REACTIONS (1)
  - Hepatitis [Not Recovered/Not Resolved]

NARRATIVE: CASE EVENT DATE: 20240603
